FAERS Safety Report 20637455 (Version 1)
Quarter: 2022Q1

REPORT INFORMATION
  Report Type: Spontaneous
  Country: JP (occurrence: JP)
  Receive Date: 20220325
  Receipt Date: 20220325
  Transmission Date: 20220423
  Serious: Yes (Death)
  Sender: FDA-Public Use
  Company Number: JP-Eisai-202010362_LEN-HCC_P_1

PATIENT
  Sex: Male

DRUGS (4)
  1. LENVATINIB [Suspect]
     Active Substance: LENVATINIB
     Indication: Hepatocellular carcinoma
     Route: 048
     Dates: start: 201806, end: 2018
  2. LENVATINIB [Suspect]
     Active Substance: LENVATINIB
     Dosage: 8 MG, 5 DAYS ON/2 DAYS OFF
     Route: 048
     Dates: start: 20180711, end: 20180731
  3. LENVATINIB [Suspect]
     Active Substance: LENVATINIB
     Dosage: 4 MG, 5 DAYS ON/2 DAYS OFF
     Route: 048
     Dates: start: 20180801, end: 20180815
  4. LENVATINIB [Suspect]
     Active Substance: LENVATINIB
     Route: 048
     Dates: start: 20180816, end: 20190106

REACTIONS (2)
  - Malignant neoplasm progression [Fatal]
  - Decreased appetite [Not Recovered/Not Resolved]

NARRATIVE: CASE EVENT DATE: 20181223
